FAERS Safety Report 6559204-4 (Version None)
Quarter: 2010Q1

REPORT INFORMATION
  Report Type: 
  Country: None (occurrence: None)
  Receive Date: 20100129
  Receipt Date: 20091016
  Transmission Date: 20100710
  Serious: No
  Sender: FDA-Public Use
  Company Number: US-ABBOTT-08P-163-0456860-00

PATIENT
  Sex: Female
  Weight: 59.02 kg

DRUGS (3)
  1. HUMIRA [Suspect]
     Indication: CROHN'S DISEASE
     Route: 050
     Dates: start: 20071101, end: 20080612
  2. MERCAPTOPURINE [Concomitant]
     Indication: CROHN'S DISEASE
     Dates: start: 20060501
  3. BENADRYL [Concomitant]
     Indication: DRUG USE FOR UNKNOWN INDICATION

REACTIONS (6)
  - AXILLARY MASS [None]
  - ERYTHEMA [None]
  - FURUNCLE [None]
  - NASAL DRYNESS [None]
  - NODULE [None]
  - PAIN [None]
